FAERS Safety Report 5233320-1 (Version None)
Quarter: 2007Q1

REPORT INFORMATION
  Report Type: 
  Country: None (occurrence: None)
  Receive Date: 20070206
  Receipt Date: 20070129
  Transmission Date: 20070707
  Serious: Yes (Hospitalization, Other)
  Sender: FDA-Public Use
  Company Number: 2006US002969

PATIENT
  Age: 81 Year
  Sex: Female

DRUGS (7)
  1. ADENOSCAN [Suspect]
     Indication: SCAN MYOCARDIAL PERFUSION
     Dates: start: 20061130, end: 20061130
  2. ASPIRIN [Concomitant]
  3. PRAVACHOL [Concomitant]
  4. BENICAR [Concomitant]
  5. AMBIEN [Concomitant]
  6. DYAZIDE [Concomitant]
  7. OSCAL [Concomitant]

REACTIONS (2)
  - MYOCARDIAL INFARCTION [None]
  - NODAL RHYTHM [None]
